FAERS Safety Report 22258563 (Version 1)
Quarter: 2023Q2

REPORT INFORMATION
  Report Type: Spontaneous
  Country: US (occurrence: US)
  Receive Date: 20230427
  Receipt Date: 20230427
  Transmission Date: 20230722
  Serious: No
  Sender: FDA-Public Use
  Company Number: US-CSLP-52600560883-V12809481-14

PATIENT
  Age: 37 Year
  Sex: Female

DRUGS (1)
  1. ANTICOAGULANT SODIUM CITRATE [Suspect]
     Active Substance: SODIUM CITRATE
     Indication: Anticoagulant therapy
     Route: 050
     Dates: start: 20230406, end: 20230406

REACTIONS (12)
  - Musculoskeletal chest pain [Unknown]
  - Panic attack [Unknown]
  - Abdominal pain [Unknown]
  - Hyperhidrosis [Unknown]
  - Vomiting [Unknown]
  - Anxiety [Unknown]
  - Feeling hot [Unknown]
  - Nausea [Unknown]
  - Dyspnoea [Unknown]
  - Pallor [Unknown]
  - Back pain [Unknown]
  - Cold sweat [Unknown]

NARRATIVE: CASE EVENT DATE: 20230406
